FAERS Safety Report 4822914-0 (Version None)
Quarter: 2005Q4

REPORT INFORMATION
  Report Type: 
  Country: None (occurrence: None)
  Receive Date: 20051104
  Receipt Date: 20051025
  Transmission Date: 20060501
  Serious: Yes (Death)
  Sender: FDA-Public Use
  Company Number: Q05-045

PATIENT
  Age: 76 Year
  Sex: Female
  Weight: 63 kg

DRUGS (1)
  1. SAMARIUM SM 153 LEXIDRONAM (QUADRAMET) [Suspect]
     Indication: MULTIPLE MYELOMA
     Dosage: 31 MCI  -ONCE -IV
     Route: 042
     Dates: start: 20050630

REACTIONS (13)
  - ASTHENIA [None]
  - BREATH SOUNDS ABNORMAL [None]
  - COMA [None]
  - DECREASED APPETITE [None]
  - DISEASE PROGRESSION [None]
  - HYPOTENSION [None]
  - MULTIPLE MYELOMA [None]
  - MYALGIA [None]
  - OEDEMA PERIPHERAL [None]
  - PAIN [None]
  - PLASMACYTOMA [None]
  - PLEURAL EFFUSION [None]
  - SENSORY LOSS [None]
